FAERS Safety Report 11543478 (Version 1)
Quarter: 2015Q3

REPORT INFORMATION
  Report Type: Spontaneous
  Country: US (occurrence: US)
  Receive Date: 20150923
  Receipt Date: 20150923
  Transmission Date: 20151125
  Serious: No
  Sender: FDA-Public Use
  Company Number: US-KOWA-2014S1001362

PATIENT
  Age: 6 Decade
  Sex: Female

DRUGS (4)
  1. LIVALO [Suspect]
     Active Substance: PITAVASTATIN CALCIUM
     Dosage: 4 MG, QD
     Route: 048
  2. GLUCOSAMINE [Concomitant]
     Active Substance: GLUCOSAMINE
  3. ARMOUR THYROID [Concomitant]
     Active Substance: THYROID, PORCINE\THYROID, UNSPECIFIED
     Indication: THYROID DISORDER
     Dosage: 30 MG, QD
     Route: 048
  4. MAG-OX [Concomitant]
     Active Substance: MAGNESIUM OXIDE

REACTIONS (2)
  - Hepatic enzyme increased [Unknown]
  - Thyroid hormones increased [Unknown]
